FAERS Safety Report 12625327 (Version 1)
Quarter: 2016Q3

REPORT INFORMATION
  Report Type: Spontaneous
  Country: US (occurrence: US)
  Receive Date: 20160805
  Receipt Date: 20160805
  Transmission Date: 20161109
  Serious: No
  Sender: FDA-Public Use
  Company Number: US-LYNE LABORATORIES INC.-1055906

PATIENT
  Age: 68 Year
  Sex: Female
  Weight: 61.36 kg

DRUGS (2)
  1. TRIAMCINOLONE ACETONIDE. [Suspect]
     Active Substance: TRIAMCINOLONE ACETONIDE
     Indication: PARAESTHESIA ORAL
     Route: 061
     Dates: start: 20150211
  2. TRIAMCINOLONE ACETONIDE. [Suspect]
     Active Substance: TRIAMCINOLONE ACETONIDE
     Indication: ORAL DISCOMFORT
     Route: 061
     Dates: start: 20150211

REACTIONS (8)
  - Gastrooesophageal reflux disease [None]
  - Product use issue [None]
  - Pyrexia [None]
  - Chills [None]
  - Vomiting [None]
  - Off label use [None]
  - Drug ineffective [Unknown]
  - Weight decreased [None]

NARRATIVE: CASE EVENT DATE: 20150211
